FAERS Safety Report 6338807-6 (Version None)
Quarter: 2009Q3

REPORT INFORMATION
  Report Type: 
  Country: None (occurrence: None)
  Receive Date: 20090903
  Receipt Date: 20090706
  Transmission Date: 20100115
  Serious: No
  Sender: FDA-Public Use
  Company Number: US-KINGPHARMUSA00001-K200900841

PATIENT
  Sex: Male
  Weight: 76.644 kg

DRUGS (5)
  1. SONATA [Suspect]
     Indication: SLEEP DISORDER
     Dosage: 5 MG, QHS
     Route: 048
     Dates: start: 20090620, end: 20090702
  2. VITAMIN E [Concomitant]
     Dosage: 200 U, QD
  3. ASCORBIC ACID [Concomitant]
     Dosage: 2500-3000 G, DAILY
  4. ZINC LOZENGES [Concomitant]
     Dosage: 1 DF, TID-QID
  5. ALPRAZOLAM [Concomitant]
     Dosage: 0.5 MG, UNK

REACTIONS (6)
  - COORDINATION ABNORMAL [None]
  - DIZZINESS [None]
  - DRUG EFFECT DECREASED [None]
  - HEADACHE [None]
  - MALAISE [None]
  - MIDDLE INSOMNIA [None]
